FAERS Safety Report 8060847-X (Version None)
Quarter: 2012Q1

REPORT INFORMATION
  Report Type: 
  Country: None (occurrence: None)
  Receive Date: 20120120
  Receipt Date: 20120117
  Transmission Date: 20120608
  Serious: Yes (Other)
  Sender: FDA-Public Use
  Company Number: DE-PFIZER INC-2011315466

PATIENT
  Sex: Male

DRUGS (3)
  1. PARACETAMOL [Concomitant]
     Indication: PAIN
     Dosage: 500, UNK
  2. ATORVASTATIN CALCIUM [Suspect]
     Indication: MYOCARDIAL INFARCTION
     Dosage: 40 MG, UNK
     Dates: start: 20100501
  3. ASPIRIN [Concomitant]
     Dosage: UNK

REACTIONS (4)
  - FIBROMYALGIA [None]
  - CHROMATURIA [None]
  - URINE ODOUR ABNORMAL [None]
  - URINE ANALYSIS ABNORMAL [None]
